FAERS Safety Report 6941350-4 (Version None)
Quarter: 2010Q3

REPORT INFORMATION
  Report Type: 
  Country: None (occurrence: None)
  Receive Date: 20100825
  Receipt Date: 20100811
  Transmission Date: 20110219
  Serious: Yes (Other)
  Sender: FDA-Public Use
  Company Number: PHHY2009AU30086

PATIENT
  Sex: Female

DRUGS (4)
  1. ZOLEDRONIC [Suspect]
     Indication: OSTEOPOROSIS
     Dosage: UNK
     Dates: start: 20090708
  2. FISH OIL [Concomitant]
     Indication: ARTHRITIS
     Dosage: 1000 MG, MANE
     Route: 048
  3. MACUVISION [Concomitant]
     Indication: MACULAR DEGENERATION
     Dosage: MANE
     Route: 048
  4. NEXIUM [Concomitant]
     Indication: GASTROOESOPHAGEAL REFLUX DISEASE
     Dosage: 20 MG MANE PRN
     Route: 048

REACTIONS (16)
  - ASTHENIA [None]
  - BEDRIDDEN [None]
  - CHILLS [None]
  - DECREASED APPETITE [None]
  - DRY MOUTH [None]
  - ERUCTATION [None]
  - HEADACHE [None]
  - HEART RATE INCREASED [None]
  - MUSCLE SPASMS [None]
  - MUSCULOSKELETAL STIFFNESS [None]
  - NASOPHARYNGITIS [None]
  - NAUSEA [None]
  - NECK PAIN [None]
  - PAIN [None]
  - PYREXIA [None]
  - VOMITING [None]
